FAERS Safety Report 23386423 (Version 1)
Quarter: 2024Q1

REPORT INFORMATION
  Report Type: Spontaneous
  Country: US (occurrence: US)
  Receive Date: 20240110
  Receipt Date: 20240110
  Transmission Date: 20240409
  Serious: Yes (Hospitalization, Other)
  Sender: FDA-Public Use
  Company Number: US-009507513-2401USA001114

PATIENT
  Age: 64 Year
  Sex: Male

DRUGS (1)
  1. KEYTRUDA [Suspect]
     Active Substance: PEMBROLIZUMAB
     Dosage: UNK

REACTIONS (10)
  - Malignant neoplasm progression [Unknown]
  - Hospitalisation [Unknown]
  - Tunnel vision [Unknown]
  - Gait disturbance [Unknown]
  - Visual impairment [Unknown]
  - Anxiety [Unknown]
  - Photophobia [Unknown]
  - Decreased appetite [Unknown]
  - Asthenia [Unknown]
  - Drug ineffective [Unknown]
